FAERS Safety Report 4991334-0 (Version None)
Quarter: 2006Q2

REPORT INFORMATION
  Report Type: 
  Country: None (occurrence: None)
  Receive Date: 20060428
  Receipt Date: 20060419
  Transmission Date: 20061013
  Serious: Yes (Other)
  Sender: FDA-Public Use
  Company Number: 2006053787

PATIENT
  Age: 64 Year
  Sex: Female
  Weight: 73.4827 kg

DRUGS (6)
  1. NORVASC [Suspect]
     Indication: BLOOD CHOLESTEROL INCREASED
     Dosage: 2.5 MG (2.5 MG, 1 IN 1 D), ORAL
     Route: 048
  2. NORVASC [Suspect]
     Indication: HYPERTENSION
     Dosage: 2.5 MG (2.5 MG, 1 IN 1 D), ORAL
     Route: 048
  3. ACTONEL [Concomitant]
  4. CENTRUM SILVER (ASCORBIC ACID, CALCIUM, MINERALS NOS, RETINOL, TOCOPHE [Concomitant]
  5. DOXEPIN HCL [Concomitant]
  6. CALTRATE (CALCIUM CARBONATE) [Concomitant]

REACTIONS (1)
  - BREAST CANCER [None]
